FAERS Safety Report 4485784-9 (Version None)
Quarter: 2004Q4

REPORT INFORMATION
  Report Type: 
  Country: None (occurrence: None)
  Receive Date: 20041026
  Receipt Date: 20040831
  Transmission Date: 20050328
  Serious: Yes (Other)
  Sender: FDA-Public Use
  Company Number: JP-ROCHE-379610

PATIENT
  Age: 25 Year
  Sex: Male

DRUGS (3)
  1. ROCEPHIN [Suspect]
     Indication: WHITE BLOOD CELL COUNT INCREASED
     Route: 042
     Dates: start: 20040308, end: 20040308
  2. SOLDEM [Concomitant]
     Indication: DEHYDRATION
     Route: 041
     Dates: start: 20040308, end: 20040309
  3. PRIMPERAN INJ [Concomitant]
     Indication: NAUSEA
     Route: 041
     Dates: start: 20040308, end: 20040309

REACTIONS (2)
  - ANAPHYLACTIC SHOCK [None]
  - SKIN TEST POSITIVE [None]
